FAERS Safety Report 9798099 (Version 1)
Quarter: 2014Q1

REPORT INFORMATION
  Report Type: Spontaneous
  Country: GB (occurrence: GB)
  Receive Date: 20140106
  Receipt Date: 20140106
  Transmission Date: 20141002
  Serious: Yes (Other)
  Sender: FDA-Public Use
  Company Number: GB-B.I. PHARMACEUTICALS,INC./RIDGEFIELD-2014-BI-00248YA

PATIENT
  Sex: Male

DRUGS (2)
  1. TAMSULOSINA [Suspect]
     Indication: PROSTATOMEGALY
     Dosage: 1 ANZ
     Route: 065
     Dates: start: 20131210, end: 20131210
  2. SIMVASTATIN [Concomitant]

REACTIONS (3)
  - Altered state of consciousness [Recovered/Resolved]
  - Contusion [Recovered/Resolved]
  - Hallucination [Recovered/Resolved]
